FAERS Safety Report 4265968-5 (Version None)
Quarter: 2004Q1

REPORT INFORMATION
  Report Type: 
  Country: None (occurrence: None)
  Receive Date: 20040106
  Receipt Date: 20031229
  Transmission Date: 20041129
  Serious: No
  Sender: FDA-Public Use
  Company Number: 03P-087-0240646-00

PATIENT

DRUGS (3)
  1. ISOPTIN [Suspect]
     Indication: ARRHYTHMIA
     Dosage: PER ORAL
     Route: 048
     Dates: start: 20020101, end: 20031016
  2. ACETYLSALICYLIC ACID SRT [Concomitant]
  3. ATENOLOL [Concomitant]

REACTIONS (1)
  - HEPATITIS ACUTE [None]
